FAERS Safety Report 4738443-9 (Version None)
Quarter: 2005Q3

REPORT INFORMATION
  Report Type: 
  Country: None (occurrence: None)
  Receive Date: 20050803
  Receipt Date: 20050728
  Transmission Date: 20060218
  Serious: Yes (Life-Threatening, Other)
  Sender: FDA-Public Use
  Company Number: 2005099476

PATIENT
  Age: 57 Year
  Sex: Male
  Weight: 93 kg

DRUGS (34)
  1. IDARUBICIN HYDROCHLORIDE POWDER, STERILE (IDARUBICIN HYDROCHLORIDE) [Suspect]
     Indication: ACUTE MYELOID LEUKAEMIA
     Dosage: 18 MG, DAILY, INTRAVENOUS
     Route: 042
     Dates: start: 20050525, end: 20050719
  2. IDARUBICIN HYDROCHLORIDE POWDER, STERILE (IDARUBICIN HYDROCHLORIDE) [Suspect]
     Indication: ILL-DEFINED DISORDER
     Dosage: 18 MG, DAILY, INTRAVENOUS
     Route: 042
     Dates: start: 20050525, end: 20050719
  3. CYTARABINE [Suspect]
     Indication: ACUTE MYELOID LEUKAEMIA
     Dosage: 6 GRAM, TWICE DAILY, INTRAVENOUS
     Route: 042
     Dates: start: 20050525, end: 20050719
  4. ETOPOSIDE [Suspect]
     Indication: ACUTE MYELOID LEUKAEMIA
     Dosage: 150 MG, DAILY, INTRAVENOUS
     Route: 042
     Dates: start: 20050525, end: 20050719
  5. FILGRASTIM (GILGRASTIM) [Suspect]
     Indication: COLONY STIMULATING FACTOR PROPHYLAXIS
     Dosage: 300 MCG (300 MCG, 1 IN 1 D), SUBCUTANEOUS
     Route: 058
     Dates: start: 20050601, end: 20050719
  6. AMPHOTERICIN B [Concomitant]
  7. AMPHOTERICIN B [Concomitant]
  8. ALLOPURINOL [Concomitant]
  9. PANTOPRAZOLE SODIUM [Concomitant]
  10. ALBUTEROL SULFATE HFA [Concomitant]
  11. PULMICORT [Concomitant]
  12. HYDROXYUREA [Concomitant]
  13. URAL (CITRIC ACID, SODIUM BICARBONATE, SODIUM CITRATE, TARTARIC ACID) [Concomitant]
  14. DIFFLAM MOUTH GEL (BENZYDAMINE HYDROCHLORIDE, CETYLPYRIDINIUM CHLORIDE [Concomitant]
  15. NILSTAT (NYSTATIN) [Concomitant]
  16. FLUCONAZOLE [Concomitant]
  17. DEXAMETHASONE [Concomitant]
  18. FUROSEMIDE [Concomitant]
  19. POTASSIUM CHLORIDE [Concomitant]
  20. VANCOMYCIN [Concomitant]
  21. MORPHINE [Concomitant]
  22. DIAZEPAM [Concomitant]
  23. TEMAZEPAM [Concomitant]
  24. NAVOBAN (TROPISETRON HYDROCHLORIDE) [Concomitant]
  25. PROCHLORPERAZINE MALEATE [Concomitant]
  26. MEPERIDINE HCL [Concomitant]
  27. ATIVAN [Concomitant]
  28. PROMETHAZINE [Concomitant]
  29. HYDROCORTISONE [Concomitant]
  30. MEROPENEM (MEROPENEM) [Concomitant]
  31. VANCOMYCIN (VANCOMUCIN) [Concomitant]
  32. CHLORSIG (CHLORAMPHENICOL) [Concomitant]
  33. FEBRIDOL (PARACETAMOL) [Concomitant]
  34. PRAMIN (METOCLOPRAMIDE) [Concomitant]

REACTIONS (6)
  - DIARRHOEA [None]
  - HYPOKALAEMIA [None]
  - NEUTROPENIA [None]
  - THROMBOCYTOPENIA [None]
  - VOMITING [None]
  - WHITE BLOOD CELL COUNT DECREASED [None]
